FAERS Safety Report 23575384 (Version 1)
Quarter: 2024Q1

REPORT INFORMATION
  Report Type: Report from Study
  Country: TW (occurrence: None)
  Receive Date: 20240228
  Receipt Date: 20240228
  Transmission Date: 20240410
  Serious: Yes (Hospitalization)
  Sender: FDA-Public Use
  Company Number: 2024A043180

PATIENT
  Sex: Male

DRUGS (1)
  1. IMFINZI [Suspect]
     Active Substance: DURVALUMAB
     Route: 041
     Dates: start: 20240115

REACTIONS (3)
  - Renal impairment [Unknown]
  - Coma [Unknown]
  - Gastric haemorrhage [Unknown]
